FAERS Safety Report 15366875 (Version 1)
Quarter: 2018Q3

REPORT INFORMATION
  Report Type: Report from Study
  Country: IT (occurrence: IT)
  Receive Date: 20180910
  Receipt Date: 20180910
  Transmission Date: 20181010
  Serious: Yes (Other)
  Sender: FDA-Public Use
  Company Number: IT-SA-2018SA240506

PATIENT
  Age: 24 Year
  Sex: Male

DRUGS (1)
  1. ALEMTUZUMAB [Suspect]
     Active Substance: ALEMTUZUMAB
     Indication: RELAPSING-REMITTING MULTIPLE SCLEROSIS
     Dosage: 12 MG, QD
     Route: 041
     Dates: start: 20180730, end: 20180801

REACTIONS (6)
  - Neutrophilia [Recovered/Resolved]
  - Pruritus generalised [Recovered/Resolved]
  - Headache [Recovered/Resolved]
  - Differential white blood cell count abnormal [Recovered/Resolved]
  - Lymphopenia [Recovered/Resolved]
  - Sinus bradycardia [Recovered/Resolved]

NARRATIVE: CASE EVENT DATE: 20180730
